FAERS Safety Report 7998746-1 (Version None)
Quarter: 2011Q4

REPORT INFORMATION
  Report Type: 
  Country: None (occurrence: None)
  Receive Date: 20111221
  Receipt Date: 20111214
  Transmission Date: 20120403
  Serious: No
  Sender: FDA-Public Use
  Company Number: US-B.I. PHARMACEUTICALS,INC./RIDGEFIELD-2011-BP-28167BP

PATIENT
  Age: 78 Year
  Sex: Female

DRUGS (1)
  1. DULCOLAX [Suspect]
     Indication: PREOPERATIVE CARE
     Dosage: 20 MG
     Route: 048
     Dates: start: 20111019, end: 20111019

REACTIONS (14)
  - NIGHT SWEATS [None]
  - MYALGIA [None]
  - MOOD ALTERED [None]
  - MUSCLE TWITCHING [None]
  - HEART RATE IRREGULAR [None]
  - APHASIA [None]
  - COGNITIVE DISORDER [None]
  - ABDOMINAL DISCOMFORT [None]
  - LIP SWELLING [None]
  - SKIN DISCOLOURATION [None]
  - PHARYNGEAL OEDEMA [None]
  - FEELING ABNORMAL [None]
  - MUSCLE SPASMS [None]
  - FATIGUE [None]
